FAERS Safety Report 4398631-0 (Version None)
Quarter: 2004Q2

REPORT INFORMATION
  Report Type: 
  Country: None (occurrence: None)
  Receive Date: 20040621
  Receipt Date: 20031107
  Transmission Date: 20050107
  Serious: Yes (Other)
  Sender: FDA-Public Use
  Company Number: 2014682

PATIENT
  Age: 35 Year
  Sex: Male
  Weight: 78 kg

DRUGS (19)
  1. OXYCONTIN [Suspect]
     Indication: PAIN
     Dosage: 40 MG, DAILY, ORAL
     Route: 048
     Dates: start: 19990210
  2. DEXAMETHASONE [Concomitant]
  3. PHENERGAN [Concomitant]
  4. TENORMIN [Concomitant]
  5. IMITREX [Concomitant]
  6. KLONOPIN [Concomitant]
  7. TYLENOL PM [Concomitant]
  8. DESIPRAMINE HCL [Concomitant]
  9. ARTIFICIAL TEARS [Concomitant]
  10. LORTAB [Concomitant]
  11. BUTALBITAL, ACETAMINOPHEN, CAFFEINE [Concomitant]
  12. CIPRO [Concomitant]
  13. LEVAQUIN [Concomitant]
  14. NEURONTIN [Concomitant]
  15. ZOLOFT [Concomitant]
  16. HYDROXYZINE [Concomitant]
  17. TRAZODONE HCL [Concomitant]
  18. VITAMIN C [Concomitant]
  19. MULTI-VITAMINS [Concomitant]

REACTIONS (13)
  - CONDITION AGGRAVATED [None]
  - DISTRACTIBILITY [None]
  - DRUG ABUSER [None]
  - DRUG DEPENDENCE [None]
  - DRUG INEFFECTIVE [None]
  - DRUG WITHDRAWAL SYNDROME [None]
  - EMOTIONAL DISTRESS [None]
  - ENERGY INCREASED [None]
  - HYPERTENSION [None]
  - INSOMNIA [None]
  - MIGRAINE [None]
  - NAUSEA [None]
  - VISION BLURRED [None]
